FAERS Safety Report 13140680 (Version 1)
Quarter: 2017Q1

REPORT INFORMATION
  Report Type: Spontaneous
  Country: FR (occurrence: FR)
  Receive Date: 20170123
  Receipt Date: 20170123
  Transmission Date: 20170428
  Serious: Yes (Hospitalization)
  Sender: FDA-Public Use
  Company Number: FR-JNJFOC-20170117813

PATIENT
  Age: 54 Year
  Sex: Female
  Weight: 89.7 kg

DRUGS (2)
  1. XARELTO [Suspect]
     Active Substance: RIVAROXABAN
     Indication: TRANSIENT ISCHAEMIC ATTACK
     Route: 048
     Dates: start: 201608, end: 20170106
  2. XARELTO [Suspect]
     Active Substance: RIVAROXABAN
     Indication: ATRIAL FIBRILLATION
     Route: 048
     Dates: start: 201608, end: 20170106

REACTIONS (3)
  - Malaise [Recovered/Resolved]
  - Haemorrhagic anaemia [Recovered/Resolved]
  - Dysfunctional uterine bleeding [Recovered/Resolved with Sequelae]

NARRATIVE: CASE EVENT DATE: 201608
